FAERS Safety Report 7015392 (Version 2)
Quarter: 2014Q3

REPORT INFORMATION
  Report Type: Spontaneous
  Country: IT (occurrence: None)
  Receive Date: 20090528
  Receipt Date: 20140724
  Transmission Date: 20150326
  Serious: Yes (Death)
  Sender: FDA-Public Use
  Company Number: 273838

PATIENT
  Age: 43 Year
  Sex: Male

DRUGS (6)
  1. BLOOD TRANSFUSION, AUXILLARY PRODUCTS) [Concomitant]
  2. (METHYLPREDNISOLONE) [Suspect]
     Active Substance: METHYLPREDNISOLONE
     Indication: ANAEMIA
     Dosage: 2 MG/KG
  3. EMTRICITABINE W/TENOFOVIR [Concomitant]
     Active Substance: EMTRICITABINE\TENOFOVIR DISOPROXIL
  4. SAQUINAVIR [Concomitant]
     Active Substance: SAQUINAVIR
  5. RITONAVIR [Concomitant]
     Active Substance: RITONAVIR
  6. (METHYLPREDNISOLONE) [Suspect]
     Active Substance: METHYLPREDNISOLONE
     Indication: AUTOIMMUNE DISORDER
     Dosage: 2 MG/KG

REACTIONS (23)
  - Rhabdomyolysis [None]
  - Diarrhoea [None]
  - Platelet count decreased [None]
  - Sepsis [None]
  - Intestinal dilatation [None]
  - Haemorrhage [None]
  - Abdominal pain [None]
  - Renal failure acute [None]
  - Septic shock [None]
  - Multi-organ disorder [None]
  - Bacterial infection [None]
  - Aeromona infection [None]
  - Diabetes mellitus [None]
  - Joint swelling [None]
  - White blood cell count decreased [None]
  - Beta haemolytic streptococcal infection [None]
  - Ascites [None]
  - General physical health deterioration [None]
  - Hypotension [None]
  - Tachypnoea [None]
  - Metabolic acidosis [None]
  - Blister [None]
  - Blood culture positive [None]
